FAERS Safety Report 14304202 (Version 1)
Quarter: 2017Q4

REPORT INFORMATION
  Report Type: Spontaneous
  Country: DE (occurrence: DE)
  Receive Date: 20171219
  Receipt Date: 20171219
  Transmission Date: 20180321
  Serious: Yes (Death)
  Sender: FDA-Public Use
  Company Number: DE-OTSUKA-DJ20121889

PATIENT
  Age: 53 Year
  Sex: Female

DRUGS (1)
  1. ABILIFY [Suspect]
     Active Substance: ARIPIPRAZOLE
     Indication: PRODUCT USED FOR UNKNOWN INDICATION
     Dosage: 10 MG, UNK
     Route: 048
     Dates: start: 201110

REACTIONS (6)
  - Malaise [Fatal]
  - Muscle spasms [Fatal]
  - Gastrointestinal disorder [Fatal]
  - Confusional state [Fatal]
  - Dizziness [Fatal]
  - Completed suicide [Fatal]
